FAERS Safety Report 16136486 (Version 1)
Quarter: 2019Q1

REPORT INFORMATION
  Report Type: Spontaneous
  Country: JP (occurrence: JP)
  Receive Date: 20190331
  Receipt Date: 20190331
  Transmission Date: 20190418
  Serious: Yes (Hospitalization, Other)
  Sender: FDA-Public Use
  Company Number: JP-AMEL-2019-00397AA

PATIENT
  Age: 45 Year
  Sex: Male
  Weight: 69 kg

DRUGS (13)
  1. QUETIAPINE 100 MG TABLET [Suspect]
     Active Substance: QUETIAPINE
     Dosage: UNK
     Route: 065
     Dates: start: 20190219, end: 20190225
  2. XEPLION [Suspect]
     Active Substance: PALIPERIDONE PALMITATE
     Indication: SCHIZOPHRENIA
     Dosage: 150 MILLIGRAM, QD
     Route: 030
     Dates: start: 20181214, end: 20181214
  3. XEPLION [Suspect]
     Active Substance: PALIPERIDONE PALMITATE
     Dosage: 100 MILLIGRAM, QD
     Route: 030
     Dates: start: 20181221, end: 20181221
  4. AMLODIPINE BESILATE [Concomitant]
     Active Substance: AMLODIPINE BESYLATE
     Indication: HYPERTENSION
     Dosage: 2.5 MILLIGRAM, QD
     Route: 048
     Dates: start: 20180517
  5. QUETIAPINE 100 MG TABLET [Suspect]
     Active Substance: QUETIAPINE
     Indication: SCHIZOPHRENIA
     Dosage: 500 MILLIGRAM, QD
     Route: 048
     Dates: start: 20180125, end: 20190102
  6. BENZALIN                           /00036201/ [Concomitant]
     Active Substance: NITRAZEPAM
     Indication: PRODUCT USED FOR UNKNOWN INDICATION
     Dosage: 10 MILLIGRAM, QD
     Route: 048
     Dates: start: 20100602
  7. TELMISARTAN. [Concomitant]
     Active Substance: TELMISARTAN
     Indication: HYPERTENSION
     Dosage: 40 MILLIGRAM, QD
     Route: 048
     Dates: start: 20180719
  8. QUETIAPINE 100 MG TABLET [Suspect]
     Active Substance: QUETIAPINE
     Dosage: UNK
     Route: 065
     Dates: start: 20190226
  9. BELSOMRA [Concomitant]
     Active Substance: SUVOREXANT
     Indication: PRODUCT USED FOR UNKNOWN INDICATION
     Dosage: 20 MILLIGRAM, QD
     Route: 048
     Dates: start: 20170407
  10. SEISHINRENSHIIN [Concomitant]
     Active Substance: HERBALS
     Indication: POLYDIPSIA
     Dosage: 2.5 MILLIGRAM, TID (GRANULES)
     Route: 048
     Dates: start: 20130828, end: 20190102
  11. INVEGA [Suspect]
     Active Substance: PALIPERIDONE
     Dosage: 3 MILLIGRAM, QD
     Route: 048
     Dates: start: 20181222, end: 20181228
  12. INVEGA [Suspect]
     Active Substance: PALIPERIDONE
     Indication: SCHIZOPHRENIA
     Dosage: 12 MILLIGRAM, QD
     Route: 048
     Dates: start: 20181124, end: 20181213
  13. QUETIAPINE 100 MG TABLET [Suspect]
     Active Substance: QUETIAPINE
     Dosage: 25-50 MG (TAKEN AS NEEDED) (RE-ADMINISTERED)
     Route: 048
     Dates: start: 20180131, end: 20190102

REACTIONS (1)
  - Priapism [Recovered/Resolved]

NARRATIVE: CASE EVENT DATE: 20181231
